FAERS Safety Report 16144831 (Version 1)
Quarter: 2019Q2

REPORT INFORMATION
  Report Type: Spontaneous
  Country: US (occurrence: US)
  Receive Date: 20190401
  Receipt Date: 20190401
  Transmission Date: 20190711
  Serious: Yes (Hospitalization)
  Sender: FDA-Public Use
  Company Number: None

PATIENT
  Sex: Male

DRUGS (10)
  1. SPRYCEL [Suspect]
     Active Substance: DASATINIB
     Indication: CHRONIC MYELOID LEUKAEMIA
     Route: 048
     Dates: start: 20100908
  2. ROSUVASTATIN. [Concomitant]
     Active Substance: ROSUVASTATIN
  3. AMLODIPINE [Concomitant]
     Active Substance: AMLODIPINE BESYLATE
  4. DIOVAN [Concomitant]
     Active Substance: VALSARTAN
  5. ASPRIN [Concomitant]
     Active Substance: ASPIRIN
  6. FUROSEMUIDE [Concomitant]
  7. METOPROL SUC [Concomitant]
  8. IRBESARTAN. [Concomitant]
     Active Substance: IRBESARTAN
  9. MULTI VITAMIN [Concomitant]
     Active Substance: VITAMINS
  10. BRILINTA [Concomitant]
     Active Substance: TICAGRELOR

REACTIONS (1)
  - Pneumonia [None]
